FAERS Safety Report 4842345-7 (Version None)
Quarter: 2005Q4

REPORT INFORMATION
  Report Type: 
  Country: None (occurrence: None)
  Receive Date: 20051129
  Receipt Date: 20051116
  Transmission Date: 20060501
  Serious: Yes (Death)
  Sender: FDA-Public Use
  Company Number: 2005150300

PATIENT
  Sex: Female

DRUGS (1)
  1. XALATAN [Suspect]
     Indication: GLAUCOMA
     Dosage: ONE DROP/DAY (INTERVAL: DAILY), OPHTHALMIC
     Route: 047
     Dates: start: 20040101, end: 20050501

REACTIONS (4)
  - CAROTID ARTERY OCCLUSION [None]
  - CATARACT [None]
  - MYOCARDIAL INFARCTION [None]
  - OESOPHAGEAL OBSTRUCTION [None]
